FAERS Safety Report 13864152 (Version 6)
Quarter: 2019Q2

REPORT INFORMATION
  Report Type: Other
  Country: US (occurrence: US)
  Receive Date: 20170814
  Receipt Date: 20190402
  Transmission Date: 20190711
  Serious: Yes (Hospitalization, Other)
  Sender: FDA-Public Use
  Company Number: US-ACORDA-ACO_140699_2017

PATIENT
  Age: 42 Year
  Sex: Male

DRUGS (7)
  1. SERTRALINE [Suspect]
     Active Substance: SERTRALINE HYDROCHLORIDE
     Indication: ASTHENIA
     Dosage: 25 MILLIGRAM, QD
     Dates: start: 20170303
  2. SERTRALINE [Suspect]
     Active Substance: SERTRALINE HYDROCHLORIDE
     Indication: DEPRESSION
  3. CLEMASTINE [Concomitant]
     Active Substance: CLEMASTINE
     Indication: DEMYELINATION
     Dosage: 2.68 MILLIGRAM, 2 TABLETS TWICE DAILY
     Route: 065
     Dates: start: 20120101
  4. AMPYRA [Suspect]
     Active Substance: DALFAMPRIDINE
     Indication: GAIT DISTURBANCE
     Dosage: 10 MG, QD
     Route: 048
     Dates: start: 20111203
  5. AMPYRA [Suspect]
     Active Substance: DALFAMPRIDINE
     Indication: MULTIPLE SCLEROSIS
     Dosage: UNK
     Route: 065
  6. BUPROPION. [Concomitant]
     Active Substance: BUPROPION
     Indication: DEPRESSION
     Dosage: 300 MILLIGRAM, QD
     Route: 065
     Dates: start: 20111203
  7. VITAMIN D2 [Concomitant]
     Active Substance: ERGOCALCIFEROL
     Indication: IMMUNE SYSTEM DISORDER
     Dosage: 5000 INTERNATIONAL UNIT, QD
     Route: 065
     Dates: start: 20111203

REACTIONS (11)
  - Seizure [Unknown]
  - Intentional product misuse [Unknown]
  - Extra dose administered [Unknown]
  - Seizure [Unknown]
  - Progressive multiple sclerosis [Unknown]
  - Gait disturbance [Unknown]
  - Therapeutic product effect decreased [Unknown]
  - Contraindicated product administered [Unknown]
  - Blood cholesterol increased [Unknown]
  - Therapy cessation [Unknown]
  - Inappropriate schedule of product administration [Unknown]

NARRATIVE: CASE EVENT DATE: 20111203
